FAERS Safety Report 17184238 (Version 1)
Quarter: 2019Q4

REPORT INFORMATION
  Report Type: Spontaneous
  Country: US (occurrence: US)
  Receive Date: 20191220
  Receipt Date: 20191220
  Transmission Date: 20200122
  Serious: No
  Sender: FDA-Public Use
  Company Number: US-RECKITT BENCKISER HEALTHCARE INT LIMITED-RB-85885-2019

PATIENT
  Age: 3 Year
  Sex: Female

DRUGS (2)
  1. DELSYM [Suspect]
     Active Substance: DEXTROMETHORPHAN
     Indication: MALAISE
     Dosage: UNK
     Route: 065
  2. DELSYM [Suspect]
     Active Substance: DEXTROMETHORPHAN
     Dosage: UNK (TOOK 12 YEAR OLD DOSE)
     Route: 065
     Dates: start: 201905, end: 201905

REACTIONS (4)
  - Eye disorder [Unknown]
  - Abnormal behaviour [Unknown]
  - Incorrect dose administered [Unknown]
  - Somnolence [Recovered/Resolved]

NARRATIVE: CASE EVENT DATE: 201905
